FAERS Safety Report 22206443 (Version 1)
Quarter: 2023Q2

REPORT INFORMATION
  Report Type: Spontaneous
  Country: US (occurrence: None)
  Receive Date: 20230412
  Receipt Date: 20230412
  Transmission Date: 20230721
  Serious: Yes (Hospitalization)
  Sender: FDA-Public Use
  Company Number: None

PATIENT
  Age: 68 Year
  Sex: Female
  Weight: 46.35 kg

DRUGS (7)
  1. SOLIFENACIN [Suspect]
     Active Substance: SOLIFENACIN
     Indication: Bladder spasm
     Dosage: OTHER QUANTITY : 1 TABLET(S);?FREQUENCY : DAILY;?
     Route: 048
     Dates: start: 20230310, end: 20230313
  2. Medtronic Interstim Implant for bowel incontinence [Concomitant]
  3. ATORVASTATIN [Concomitant]
     Active Substance: ATORVASTATIN
  4. ASPIRIN [Concomitant]
     Active Substance: ASPIRIN
  5. TYLENOL [Concomitant]
  6. ALLEGRA [Concomitant]
     Active Substance: FEXOFENADINE HYDROCHLORIDE
  7. Calcium plus Magnesium [Concomitant]

REACTIONS (8)
  - Weight bearing difficulty [None]
  - Gait inability [None]
  - Hallucination [None]
  - Confusional state [None]
  - Somnolence [None]
  - Dry mouth [None]
  - Depressed level of consciousness [None]
  - Dehydration [None]

NARRATIVE: CASE EVENT DATE: 20230311
